FAERS Safety Report 12290668 (Version 3)
Quarter: 2016Q2

REPORT INFORMATION
  Report Type: Spontaneous
  Country: US (occurrence: US)
  Receive Date: 20160421
  Receipt Date: 20160520
  Transmission Date: 20160815
  Serious: No
  Sender: FDA-Public Use
  Company Number: US-PFIZER INC-2016181986

PATIENT
  Age: 51 Year
  Sex: Female
  Weight: 130.63 kg

DRUGS (1)
  1. ADVIL [Suspect]
     Active Substance: IBUPROFEN
     Indication: ARTHRITIS
     Dosage: FOUR 200 MG TABLETS BY MOUTH
     Route: 048

REACTIONS (10)
  - Hypoaesthesia oral [Recovered/Resolved]
  - Condition aggravated [Not Recovered/Not Resolved]
  - Oropharyngeal pain [Not Recovered/Not Resolved]
  - Foaming at mouth [Recovered/Resolved]
  - Dysgeusia [Recovered/Resolved]
  - Food interaction [Unknown]
  - Expired product administered [Unknown]
  - Intentional product misuse [Unknown]
  - Throat irritation [Recovering/Resolving]
  - Dysphonia [Unknown]

NARRATIVE: CASE EVENT DATE: 20160328
